FAERS Safety Report 17047886 (Version 1)
Quarter: 2019Q4

REPORT INFORMATION
  Report Type: Report from Study
  Country: TW (occurrence: TW)
  Receive Date: 20191119
  Receipt Date: 20191119
  Transmission Date: 20200122
  Serious: Yes (Death)
  Sender: FDA-Public Use
  Company Number: TW-ASTRAZENECA-2019SF63095

PATIENT
  Age: 50 Year
  Sex: Female

DRUGS (2)
  1. FASLODEX [Suspect]
     Active Substance: FULVESTRANT
     Indication: BREAST CANCER
     Dosage: 500 MG EVERY TWO WEEKS, PI:500 MG AS TWO 5 ML INJECTIONS, ONE IN EACH BUTTOCK, ON DAYS 1, 15, 29 ...
     Route: 030
     Dates: start: 20180525, end: 20180608
  2. FASLODEX [Suspect]
     Active Substance: FULVESTRANT
     Indication: BREAST CANCER
     Dosage: 500 MG MONTHLY, PI:500 MG AS TWO 5 ML INJECTIONS, ONE IN EACH BUTTOCK, ON DAYS 1, 15, 29 AND ONCE...
     Route: 030
     Dates: start: 20180701, end: 20190925

REACTIONS (1)
  - Death [Fatal]

NARRATIVE: CASE EVENT DATE: 20191003
